FAERS Safety Report 8523643-2 (Version None)
Quarter: 2012Q3

REPORT INFORMATION
  Report Type: 
  Country: None (occurrence: None)
  Receive Date: 20120720
  Receipt Date: 20120710
  Transmission Date: 20120928
  Serious: Yes (Hospitalization, Other)
  Sender: FDA-Public Use
  Company Number: JP-BAYER-2011-080387

PATIENT
  Age: 72 Year
  Sex: Male
  Weight: 61.224 kg

DRUGS (36)
  1. LASIX [Suspect]
     Dosage: 20 MG, OW
     Route: 042
     Dates: start: 20101101, end: 20100101
  2. HIRUDOID [Concomitant]
     Dosage: UNK
     Route: 061
     Dates: start: 20100803, end: 20100803
  3. NOVORAPID [Concomitant]
     Dosage: DAILY DOSE 30 U
     Route: 058
     Dates: start: 20101126, end: 20101202
  4. NEXAVAR [Suspect]
     Dosage: 400 MG, QOD
     Route: 048
     Dates: start: 20101207, end: 20110110
  5. LASIX [Suspect]
     Dosage: 20 MG, QD
     Route: 048
     Dates: start: 20110114
  6. ALDACTONE [Concomitant]
     Dosage: DAILY DOSE 75 MG
     Route: 048
     Dates: start: 20100928, end: 20101018
  7. NOVORAPID [Concomitant]
     Dosage: DAILY DOSE 18 U
     Route: 058
     Dates: start: 20101119, end: 20101122
  8. KANAMYCIN [Concomitant]
     Dosage: DAILY DOSE 750 MG
     Route: 048
     Dates: start: 20110219
  9. LASIX [Suspect]
     Dosage: 60 MG, QD
     Route: 048
     Dates: start: 20100928, end: 20101018
  10. BASEN [Concomitant]
     Dosage: DAILY DOSE 0.9 MG
     Route: 048
  11. FAMOTIDINE [Concomitant]
     Dosage: DAILY DOSE 20 MG
     Route: 048
  12. NOVORAPID [Concomitant]
     Dosage: DAILY DOSE 24 U
     Route: 058
     Dates: start: 20101123, end: 20101125
  13. BIO THREE [CLOSTRID BUTYRICUM,LACTOBAC ACIDOPH,SACCHAROM BOULAR] [Concomitant]
     Dosage: DAILY DOSE 3 DF
     Route: 048
     Dates: start: 20101122
  14. MAGNESIUM OXIDE [Concomitant]
     Dosage: DAILY DOSE 1.5 G
     Route: 048
     Dates: start: 20101122
  15. LASIX [Suspect]
     Dosage: 20 MG, QD
     Route: 048
     Dates: end: 20100913
  16. LASIX [Suspect]
     Dosage: 20 MG, ONCE
     Route: 042
     Dates: start: 20101115, end: 20101115
  17. URSO 250 [Concomitant]
     Dosage: DAILY DOSE 600 MG
     Route: 048
  18. AMARYL [Concomitant]
     Dosage: DAILY DOSE 6 MG
     Route: 048
     Dates: end: 20101018
  19. ALDACTONE [Concomitant]
     Dosage: DAILY DOSE 25 MG
     Route: 048
     Dates: end: 20100913
  20. ALDACTONE [Concomitant]
     Dosage: DAILY DOSE 50 MG
     Route: 048
     Dates: start: 20100914, end: 20100927
  21. ALBUMIN (HUMAN) [Concomitant]
     Dosage: DAILY DOSE 50 ML
     Route: 042
     Dates: start: 20101101, end: 20100101
  22. NEXAVAR [Suspect]
     Indication: HEPATIC NEOPLASM MALIGNANT
     Dosage: 200 MG, QD
     Route: 048
     Dates: start: 20100804, end: 20101115
  23. NEXAVAR [Suspect]
     Dosage: 400 MG, QOD
     Route: 048
     Dates: start: 20110322
  24. AMARYL [Concomitant]
     Dosage: DAILY DOSE 3 MG
     Route: 048
     Dates: start: 20101019
  25. ALDACTONE [Concomitant]
     Dosage: DAILY DOSE 50 MG
     Route: 048
     Dates: start: 20100914, end: 20100927
  26. ALDACTONE [Concomitant]
     Dosage: DAILY DOSE 50 MG
     Route: 048
     Dates: start: 20101019
  27. MYSER [Concomitant]
     Dosage: UNK
     Route: 061
     Dates: start: 20100803, end: 20100803
  28. NOVORAPID [Concomitant]
     Dosage: DAILY DOSE 42 U
     Route: 058
     Dates: start: 20101203
  29. LEVOFLOXACIN [Concomitant]
     Indication: INFECTION PROPHYLAXIS
     Dosage: DAILY DOSE 250 MG
     Route: 048
     Dates: start: 20101122, end: 20110218
  30. LASIX [Suspect]
     Dosage: 40 MG, QD
     Route: 048
     Dates: start: 20101019, end: 20110111
  31. SHAKUYAKUKANZOUTOU [Concomitant]
     Dosage: 1 DF, PRN
     Route: 048
     Dates: start: 20101004, end: 20110204
  32. AMARYL [Concomitant]
     Dosage: DAILY DOSE 3 MG
     Route: 048
     Dates: start: 20101019
  33. HOCHUUEKKITOU [Concomitant]
     Dosage: DAILY DOSE 3 DF
     Route: 048
     Dates: start: 20100818, end: 20101019
  34. LASIX [Suspect]
     Dosage: 40 MG, QD
     Route: 048
     Dates: start: 20100914, end: 20100927
  35. LIVACT [Concomitant]
     Dosage: DAILY DOSE 3 DF
     Route: 048
  36. ALBUMIN (HUMAN) [Concomitant]
     Dosage: DAILY DOSE 50 ML
     Route: 042
     Dates: start: 20101115, end: 20101115

REACTIONS (9)
  - ASCITES [None]
  - DYSPHONIA [None]
  - DIABETES MELLITUS [None]
  - HYPONATRAEMIA [None]
  - HYPERTENSION [None]
  - MUSCLE SPASMS [None]
  - PYREXIA [None]
  - HEPATIC ENCEPHALOPATHY [None]
  - TRANSAMINASES INCREASED [None]
